FAERS Safety Report 17365991 (Version 3)
Quarter: 2020Q1

REPORT INFORMATION
  Report Type: Spontaneous
  Country: DE (occurrence: DE)
  Receive Date: 20200204
  Receipt Date: 20200224
  Transmission Date: 20200409
  Serious: Yes (Hospitalization)
  Sender: FDA-Public Use
  Company Number: NVSC2020DE027699

PATIENT
  Sex: Male
  Weight: 36 kg

DRUGS (8)
  1. HUMIRA [Suspect]
     Active Substance: ADALIMUMAB
     Indication: JUVENILE IDIOPATHIC ARTHRITIS
     Dosage: 20 MG, BIW
     Route: 058
     Dates: start: 20140909, end: 20170322
  2. AVASTIN [Suspect]
     Active Substance: BEVACIZUMAB
     Indication: UVEITIS
     Dosage: UNK
     Route: 065
  3. METHOTREXATE. [Suspect]
     Active Substance: METHOTREXATE
     Indication: JUVENILE IDIOPATHIC ARTHRITIS
     Dosage: 12.5 MG, QW
     Route: 048
     Dates: start: 20100419
  4. HUMIRA [Suspect]
     Active Substance: ADALIMUMAB
     Dosage: UNK
     Route: 058
  5. CORTISON [Suspect]
     Active Substance: CORTISONE ACETATE
     Indication: PRODUCT USED FOR UNKNOWN INDICATION
     Dosage: UNK
     Route: 065
  6. AVASTIN [Suspect]
     Active Substance: BEVACIZUMAB
     Dosage: UNK
     Route: 065
     Dates: start: 201703, end: 201703
  7. TOCILIZUMAB. [Concomitant]
     Active Substance: TOCILIZUMAB
     Indication: PRODUCT USED FOR UNKNOWN INDICATION
     Dosage: 260 MG, Q4W
     Route: 065
     Dates: start: 20170410
  8. CORTISON [Suspect]
     Active Substance: CORTISONE ACETATE
     Dosage: UNK
     Route: 065
     Dates: start: 201703, end: 201703

REACTIONS (3)
  - Ischaemia [Recovered/Resolved]
  - Psoriasis [Not Recovered/Not Resolved]
  - Iridocyclitis [Not Recovered/Not Resolved]

NARRATIVE: CASE EVENT DATE: 201703
